FAERS Safety Report 14822574 (Version 3)
Quarter: 2018Q3

REPORT INFORMATION
  Report Type: Spontaneous
  Country: FR (occurrence: FR)
  Receive Date: 20180427
  Receipt Date: 20180802
  Transmission Date: 20181010
  Serious: Yes (Hospitalization, Other)
  Sender: FDA-Public Use
  Company Number: FR-ELI_LILLY_AND_COMPANY-FR201804010023

PATIENT
  Sex: Male
  Weight: 79 kg

DRUGS (4)
  1. ZYPADHERA [Suspect]
     Active Substance: OLANZAPINE PAMOATE
     Indication: PRODUCT USED FOR UNKNOWN INDICATION
     Dosage: 305 MG, MONTHLY (1/M)
     Route: 030
     Dates: start: 20180420
  2. ZYPADHERA [Suspect]
     Active Substance: OLANZAPINE PAMOATE
     Dosage: 405 MG, MONTHLY (1/M)
     Route: 030
     Dates: start: 20170609
  3. DEPAKOTE [Concomitant]
     Active Substance: DIVALPROEX SODIUM
     Indication: PRODUCT USED FOR UNKNOWN INDICATION
     Dosage: 1500 MG, UNKNOWN
     Dates: start: 20180612
  4. ZYPADHERA [Suspect]
     Active Substance: OLANZAPINE PAMOATE
     Dosage: UNK, EVERY FOUR WEEKS
     Route: 030
     Dates: end: 20180608

REACTIONS (19)
  - Hallucination, visual [Recovered/Resolved]
  - Disinhibition [Recovered/Resolved]
  - Gait disturbance [Recovered/Resolved]
  - Amnesia [Not Recovered/Not Resolved]
  - Irritability [Recovered/Resolved]
  - Balance disorder [Recovered/Resolved]
  - Fatigue [Recovered/Resolved]
  - Sedation [Recovered/Resolved]
  - Somnolence [Recovered/Resolved]
  - Akathisia [Recovered/Resolved]
  - Dysarthria [Recovered/Resolved]
  - Anxiety [Recovered/Resolved]
  - Feeling abnormal [Recovered/Resolved]
  - Confusional state [Recovered/Resolved]
  - Post-injection delirium sedation syndrome [Recovered/Resolved]
  - Agitation [Recovered/Resolved]
  - Electrocardiogram QRS complex shortened [Unknown]
  - Aggression [Recovered/Resolved]
  - C-reactive protein increased [Unknown]
